FAERS Safety Report 20121198 (Version 1)
Quarter: 2021Q4

REPORT INFORMATION
  Report Type: Spontaneous
  Country: US (occurrence: None)
  Receive Date: 20211124
  Receipt Date: 20211124
  Transmission Date: 20220303
  Serious: Yes (Death)
  Sender: FDA-Public Use
  Company Number: None

PATIENT
  Age: 50 Year
  Sex: Female

DRUGS (2)
  1. MEKTOVI [Suspect]
     Active Substance: BINIMETINIB
     Dosage: FREQUENCY : TOTAL;?
     Route: 048
     Dates: start: 202109
  2. BRAFTOVI [Suspect]
     Active Substance: ENCORAFENIB
     Dosage: FREQUENCY : DAILY;?
     Route: 048
     Dates: start: 202109

REACTIONS (1)
  - Death [None]

NARRATIVE: CASE EVENT DATE: 20211120
